FAERS Safety Report 24779960 (Version 2)
Quarter: 2025Q1

REPORT INFORMATION
  Report Type: Spontaneous
  Country: MX (occurrence: MX)
  Receive Date: 20241226
  Receipt Date: 20250101
  Transmission Date: 20250408
  Serious: Yes (Hospitalization, Other)
  Sender: NOVO NORDISK
  Company Number: MX-NOVOPROD-1339128

PATIENT
  Sex: Female

DRUGS (2)
  1. SAXENDA [Suspect]
     Active Substance: LIRAGLUTIDE
  2. SAXENDA [Suspect]
     Active Substance: LIRAGLUTIDE
     Indication: Product used for unknown indication
     Dates: start: 2023

REACTIONS (3)
  - Syncope [Unknown]
  - Asthenia [Unknown]
  - Nausea [Unknown]
